FAERS Safety Report 7424364-X (Version None)
Quarter: 2011Q2

REPORT INFORMATION
  Report Type: 
  Country: None (occurrence: None)
  Receive Date: 20110411
  Receipt Date: 20110328
  Transmission Date: 20111010
  Serious: Yes (Hospitalization, Other)
  Sender: FDA-Public Use
  Company Number: 2011SP000763

PATIENT
  Age: 85 Year
  Sex: Male
  Weight: 76.7 kg

DRUGS (14)
  1. DRONEDARONE [Concomitant]
  2. PEPCID [Concomitant]
  3. LASIX [Concomitant]
  4. STOOL SOFTENER [Concomitant]
  5. DIOVAN [Concomitant]
  6. RESTORIL [Concomitant]
  7. OMNARIS [Suspect]
     Indication: RHINORRHOEA
     Dosage: 200 UG;HS;NASAL
     Dates: start: 20100101, end: 20100101
  8. OMNARIS [Suspect]
     Indication: LACRIMATION INCREASED
     Dosage: 200 UG;HS;NASAL
     Dates: start: 20100101, end: 20100101
  9. OMNARIS [Suspect]
     Indication: HYPERSENSITIVITY
     Dosage: 200 UG;HS;NASAL
     Dates: start: 20100101, end: 20100101
  10. OMNARIS [Suspect]
     Indication: RHINORRHOEA
     Dosage: 200 UG;HS;NASAL
     Dates: start: 20110101
  11. OMNARIS [Suspect]
     Indication: LACRIMATION INCREASED
     Dosage: 200 UG;HS;NASAL
     Dates: start: 20110101
  12. OMNARIS [Suspect]
     Indication: HYPERSENSITIVITY
     Dosage: 200 UG;HS;NASAL
     Dates: start: 20110101
  13. PREDNISONE [Concomitant]
  14. COUMADIN [Concomitant]

REACTIONS (4)
  - LACRIMATION INCREASED [None]
  - STREPTOCOCCAL INFECTION [None]
  - RHINORRHOEA [None]
  - MIDDLE INSOMNIA [None]
